FAERS Safety Report 13960272 (Version 1)
Quarter: 2017Q3

REPORT INFORMATION
  Report Type: Report from Study
  Country: JP (occurrence: JP)
  Receive Date: 20170912
  Receipt Date: 20170912
  Transmission Date: 20171128
  Serious: Yes (Other)
  Sender: FDA-Public Use
  Company Number: JP-ACTELION-A-CH2017-159059

PATIENT
  Age: 75 Year
  Sex: Female

DRUGS (8)
  1. WARFARIN [Suspect]
     Active Substance: WARFARIN
     Indication: PULMONARY HYPERTENSION
     Dosage: UNK MG, QD
     Route: 065
     Dates: start: 201210
  2. ADEMPAS [Concomitant]
     Active Substance: RIOCIGUAT
  3. BONOTEO [Concomitant]
     Active Substance: MINODRONIC ACID
  4. PARAMIDIN [Suspect]
     Active Substance: BUCOLOME
     Indication: HYPERURICAEMIA
     Dosage: 300 MG, QD
     Route: 048
     Dates: start: 201210
  5. OPSUMIT [Suspect]
     Active Substance: MACITENTAN
     Indication: PULMONARY HYPERTENSION
     Dosage: 10 MG, QD
     Route: 048
     Dates: start: 20160720
  6. ALDACTONE A [Concomitant]
     Active Substance: SPIRONOLACTONE
  7. PARIET [Concomitant]
     Active Substance: RABEPRAZOLE SODIUM
  8. DIART [Concomitant]
     Active Substance: AZOSEMIDE

REACTIONS (2)
  - Upper respiratory tract inflammation [Recovered/Resolved]
  - International normalised ratio increased [Recovered/Resolved]

NARRATIVE: CASE EVENT DATE: 20160926
